FAERS Safety Report 9784449 (Version 2)
Quarter: 2013Q4

REPORT INFORMATION
  Report Type: Spontaneous
  Country: CA (occurrence: CA)
  Receive Date: 20131226
  Receipt Date: 20131226
  Transmission Date: 20140711
  Serious: Yes (Hospitalization)
  Sender: FDA-Public Use
  Company Number: CA-BAXTER-2013BAX049370

PATIENT
  Age: 59 Year
  Sex: Male

DRUGS (3)
  1. DIANEAL PD4 SOLUTION WITH 2.5% DEXTROSE AND 2.5 MEQ/L CALCIUM [Suspect]
     Indication: PERITONEAL DIALYSIS
     Route: 033
  2. EXTRANEAL [Suspect]
     Indication: PERITONEAL DIALYSIS
     Route: 033
  3. ERTAPENEM [Suspect]
     Indication: PAIN IN EXTREMITY

REACTIONS (7)
  - Pain in extremity [Recovering/Resolving]
  - Limb injury [Recovering/Resolving]
  - Toxicity to various agents [Recovering/Resolving]
  - Fatigue [Recovering/Resolving]
  - Sluggishness [Recovering/Resolving]
  - Hallucination [Recovering/Resolving]
  - Adverse drug reaction [Recovering/Resolving]
